FAERS Safety Report 7599994-5 (Version None)
Quarter: 2011Q3

REPORT INFORMATION
  Report Type: 
  Country: None (occurrence: None)
  Receive Date: 20110706
  Receipt Date: 20110706
  Transmission Date: 20111222
  Serious: Yes (Hospitalization)
  Sender: FDA-Public Use
  Company Number: None

PATIENT
  Sex: Female
  Weight: 105.8 kg

DRUGS (2)
  1. ERBITUX [Suspect]
     Dosage: 800 MG
  2. CISPLATIN [Suspect]
     Dosage: 60 MG

REACTIONS (3)
  - THROMBOTIC STROKE [None]
  - CEREBRAL INFARCTION [None]
  - ANTIPHOSPHOLIPID SYNDROME [None]
